FAERS Safety Report 9129129 (Version 1)
Quarter: 2013Q1

REPORT INFORMATION
  Report Type: Spontaneous
  Country: DE (occurrence: DE)
  Receive Date: 20130125
  Receipt Date: 20130125
  Transmission Date: 20140127
  Serious: Yes (Other)
  Sender: FDA-Public Use
  Company Number: DE-ROCHE-1183485

PATIENT
  Age: 64 Year
  Sex: Male
  Weight: 76 kg

DRUGS (4)
  1. PEGASYS [Suspect]
     Indication: CHRONIC HEPATITIS C
     Route: 065
     Dates: start: 201209
  2. PEGASYS [Suspect]
     Route: 065
     Dates: start: 201210
  3. RIBAVIRIN [Suspect]
     Indication: CHRONIC HEPATITIS C
     Route: 065
     Dates: start: 201209
  4. BOCEPREVIR [Concomitant]
     Indication: CHRONIC HEPATITIS C
     Route: 065
     Dates: start: 201210

REACTIONS (5)
  - Retinal vein occlusion [Recovering/Resolving]
  - Retinal haemorrhage [Recovering/Resolving]
  - Haemoglobin decreased [Unknown]
  - White blood cell count decreased [Unknown]
  - Platelet count decreased [Unknown]
